FAERS Safety Report 5532219-0 (Version None)
Quarter: 2007Q4

REPORT INFORMATION
  Report Type: 
  Country: None (occurrence: None)
  Receive Date: 20071128
  Receipt Date: 20071113
  Transmission Date: 20080405
  Serious: Yes (Hospitalization, Other)
  Sender: FDA-Public Use
  Company Number: 17879

PATIENT
  Age: 27 Year
  Sex: Female

DRUGS (9)
  1. ETOPOSIDE [Suspect]
     Indication: HODGKIN'S DISEASE
     Dosage: 200 MG/M2 IV
     Route: 042
     Dates: start: 20040301, end: 20050501
  2. VINBLASTINE SULFATE [Suspect]
     Indication: HODGKIN'S DISEASE
     Dosage: 6 MG/M2 OTH IV
     Route: 042
     Dates: start: 20040301, end: 20050501
  3. VINCRISTINE [Suspect]
     Indication: HODGKIN'S DISEASE
     Dosage: 1.4 MG/M2 IV
     Route: 042
     Dates: start: 20040301, end: 20050501
  4. DOXORUBICIN HCL [Suspect]
     Indication: HODGKIN'S DISEASE
     Dosage: 25 MG/M2 IV
     Route: 042
     Dates: start: 20040301, end: 20050501
  5. BLEOMYCIN [Suspect]
     Indication: HODGKIN'S DISEASE
     Dosage: 10 MG/M2
     Dates: start: 20040301, end: 20050501
  6. DACARBAZINE [Suspect]
     Indication: HODGKIN'S DISEASE
     Dosage: 375 MG/M2 IV
     Route: 042
     Dates: start: 20040301, end: 20050501
  7. CYCLOPHOSPHAMIDE [Suspect]
     Indication: HODGKIN'S DISEASE
     Dosage: 650 MG/M2 IV
     Route: 042
     Dates: start: 20040301, end: 20050501
  8. PROCARBAZINE [Suspect]
     Indication: HODGKIN'S DISEASE
     Dosage: 100 MG/M2 PO
     Route: 048
     Dates: start: 20040301, end: 20050501
  9. PREDNISONE [Suspect]
     Indication: HODGKIN'S DISEASE
     Dosage: 40 MG/M2 PO
     Route: 048
     Dates: start: 20040301, end: 20050501

REACTIONS (1)
  - ACUTE MYELOID LEUKAEMIA [None]
